FAERS Safety Report 15673739 (Version 1)
Quarter: 2018Q4

REPORT INFORMATION
  Report Type: Spontaneous
  Country: US (occurrence: US)
  Receive Date: 20181129
  Receipt Date: 20181129
  Transmission Date: 20190205
  Serious: Yes (Other)
  Sender: FDA-Public Use
  Company Number: US-PFIZER INC-2018390695

PATIENT
  Age: 75 Year
  Sex: Female

DRUGS (2)
  1. GABAPENTIN. [Suspect]
     Active Substance: GABAPENTIN
     Indication: SPINAL OSTEOARTHRITIS
  2. GABAPENTIN. [Suspect]
     Active Substance: GABAPENTIN
     Indication: CERVICAL NEURITIS
     Dosage: UNK

REACTIONS (7)
  - Extrasystoles [Unknown]
  - Blood glucose abnormal [Unknown]
  - Brain neoplasm [Unknown]
  - Fibromyalgia [Unknown]
  - Product use in unapproved indication [Unknown]
  - Headache [Unknown]
  - Heart rate increased [Unknown]
